FAERS Safety Report 25399224 (Version 1)
Quarter: 2025Q2

REPORT INFORMATION
  Report Type: Report from Study
  Country: US (occurrence: US)
  Receive Date: 20250605
  Receipt Date: 20250605
  Transmission Date: 20250717
  Serious: No
  Sender: JOHNSON AND JOHNSON
  Company Number: US-JNJFOC-20250535217

PATIENT
  Age: 60 Year

DRUGS (2)
  1. STELARA [Suspect]
     Active Substance: USTEKINUMAB
     Indication: Crohn^s disease
     Route: 058
     Dates: start: 20240515
  2. STELARA [Suspect]
     Active Substance: USTEKINUMAB

REACTIONS (5)
  - Injection site pain [Unknown]
  - Inappropriate schedule of product administration [Unknown]
  - Injection site rash [Recovering/Resolving]
  - Injection site haemorrhage [Unknown]
  - Needle issue [Unknown]

NARRATIVE: CASE EVENT DATE: 20250528
